FAERS Safety Report 5075904-X (Version None)
Quarter: 2006Q3

REPORT INFORMATION
  Report Type: 
  Country: None (occurrence: None)
  Receive Date: 20060804
  Receipt Date: 20060804
  Transmission Date: 20061208
  Serious: No
  Sender: FDA-Public Use
  Company Number: None

PATIENT
  Age: 64 Year
  Sex: Male
  Weight: 120.2032 kg

DRUGS (1)
  1. ZICAM COLD REMEDY NASAL GEL  MATRIXX INITIATIVES [Suspect]
     Indication: NASOPHARYNGITIS
     Dates: start: 20030910, end: 20030915

REACTIONS (4)
  - ANOSMIA [None]
  - HYPOAESTHESIA [None]
  - HYPOGEUSIA [None]
  - NASAL DISCOMFORT [None]
